FAERS Safety Report 9801976 (Version 1)
Quarter: 2014Q1

REPORT INFORMATION
  Report Type: Spontaneous
  Country: GB (occurrence: GB)
  Receive Date: 20140107
  Receipt Date: 20140107
  Transmission Date: 20141002
  Serious: Yes (Other)
  Sender: FDA-Public Use
  Company Number: GB-TEVA-453758ISR

PATIENT
  Age: 70 Year
  Sex: Male
  Weight: 74 kg

DRUGS (12)
  1. PREDNISOLONE [Suspect]
     Dates: start: 20131216
  2. FERROUS SULPHATE [Concomitant]
     Dates: start: 20130723, end: 20131210
  3. AMLODIPINE [Concomitant]
     Dates: start: 20130903
  4. FINASTERIDE [Concomitant]
     Dates: start: 20130903
  5. LISINOPRIL [Concomitant]
     Dates: start: 20130903
  6. PANTOPRAZOLE [Concomitant]
     Dates: start: 20130903
  7. SERETIDE [Concomitant]
     Dates: start: 20130903
  8. SIMVASTATIN [Concomitant]
     Dates: start: 20130903
  9. TAMSULOSIN HYDROCHLORIDE [Concomitant]
     Dates: start: 20130903
  10. TIOTROPIUM [Concomitant]
     Dates: start: 20130903
  11. TRAZODONE [Concomitant]
     Dates: start: 20130903
  12. VENTOLIN [Concomitant]
     Dates: start: 20130903

REACTIONS (1)
  - Local swelling [Recovered/Resolved]
